FAERS Safety Report 15261011 (Version 2)
Quarter: 2018Q3

REPORT INFORMATION
  Report Type: Report from Study
  Country: DE (occurrence: DE)
  Receive Date: 20180809
  Receipt Date: 20180813
  Transmission Date: 20181010
  Serious: Yes (Life-Threatening, Other)
  Sender: FDA-Public Use
  Company Number: DE-BRISTOL-MYERS SQUIBB COMPANY-BMS-2018-073494

PATIENT
  Age: 53 Year
  Sex: Male

DRUGS (4)
  1. GEMCITABINE HYDROCHLORIDE. [Suspect]
     Active Substance: GEMCITABINE HYDROCHLORIDE
     Indication: T-CELL LYMPHOMA
     Dosage: 2020 MG, UNK 1X/CYCLE
     Route: 042
     Dates: start: 20180319, end: 20180615
  2. FILGRASTIM [Suspect]
     Active Substance: FILGRASTIM
     Indication: T-CELL LYMPHOMA
     Dosage: 6 MG, UNK 4D/CYCLE
     Route: 058
     Dates: start: 20180403, end: 20180619
  3. NIVOLUMAB [Suspect]
     Active Substance: NIVOLUMAB
     Indication: T-CELL LYMPHOMA
     Dosage: 225 MG, UNK 1X/CYCLE
     Route: 042
     Dates: start: 20180315, end: 20180615
  4. OXALIPLATIN. [Suspect]
     Active Substance: OXALIPLATIN
     Indication: T-CELL LYMPHOMA
     Dosage: 202 MG, UNK 1X/CYCLE
     Route: 042
     Dates: start: 20180319, end: 20180615

REACTIONS (1)
  - Thrombocytopenia [Recovered/Resolved]

NARRATIVE: CASE EVENT DATE: 20180622
